FAERS Safety Report 14831842 (Version 1)
Quarter: 2018Q2

REPORT INFORMATION
  Report Type: Spontaneous
  Country: US (occurrence: US)
  Receive Date: 20180415
  Receipt Date: 20180415
  Transmission Date: 20180711
  Serious: No
  Sender: FDA-Public Use
  Company Number: None

PATIENT
  Age: 29 Year
  Sex: Female
  Weight: 81 kg

DRUGS (1)
  1. NUVARING [Suspect]
     Active Substance: ETHINYL ESTRADIOL\ETONOGESTREL
     Indication: CONTRACEPTION
     Dosage: ?          QUANTITY:1 RING;OTHER FREQUENCY:MONTHLT;?
     Route: 067

REACTIONS (11)
  - Enlarged clitoris [None]
  - Vaginal infection [None]
  - Vulvovaginal swelling [None]
  - Anorgasmia [None]
  - Burning sensation [None]
  - Vulvovaginal burning sensation [None]
  - Dyspareunia [None]
  - Libido decreased [None]
  - Vulvovaginal erythema [None]
  - Vaginal discharge [None]
  - Fungal infection [None]

NARRATIVE: CASE EVENT DATE: 20180109
